FAERS Safety Report 16370882 (Version 1)
Quarter: 2019Q2

REPORT INFORMATION
  Report Type: Spontaneous
  Country: US (occurrence: US)
  Receive Date: 20190422
  Receipt Date: 20190422
  Transmission Date: 20190711
  Serious: Yes (Hospitalization)
  Sender: FDA-Public Use
  Company Number: None

PATIENT
  Age: 82 Year
  Sex: Male

DRUGS (2)
  1. WARFARIN [Suspect]
     Active Substance: WARFARIN
     Indication: ATRIAL FIBRILLATION
     Route: 048
     Dates: start: 20131105, end: 20150325
  2. ASPIRIN. [Suspect]
     Active Substance: ASPIRIN
     Indication: CORONARY ARTERY DISEASE
     Route: 048
     Dates: start: 20130311

REACTIONS (6)
  - Gastritis erosive [None]
  - Gastric ulcer [None]
  - International normalised ratio decreased [None]
  - Anaemia [None]
  - Barrett^s oesophagus [None]
  - Gastritis [None]

NARRATIVE: CASE EVENT DATE: 20150315
